FAERS Safety Report 6363539-8 (Version None)
Quarter: 2009Q3

REPORT INFORMATION
  Report Type: 
  Country: None (occurrence: None)
  Receive Date: 20090919
  Receipt Date: 20090625
  Transmission Date: 20100115
  Serious: No
  Sender: FDA-Public Use
  Company Number: US-ABBOTT-09P-163-0582397-00

PATIENT
  Sex: Female
  Weight: 90.8 kg

DRUGS (6)
  1. HUMIRA [Suspect]
     Indication: PSORIATIC ARTHROPATHY
     Route: 058
     Dates: start: 20090201
  2. HUMIRA [Suspect]
     Indication: PSORIASIS
  3. CELEXA [Concomitant]
     Indication: DRUG USE FOR UNKNOWN INDICATION
  4. CRESTOR [Concomitant]
     Indication: BLOOD CHOLESTEROL
  5. DIAZIDE [Concomitant]
     Indication: DIURETIC THERAPY
  6. HYDROXYZINE [Concomitant]
     Indication: PRURITUS

REACTIONS (2)
  - HEADACHE [None]
  - WEIGHT INCREASED [None]
